FAERS Safety Report 21875545 (Version 1)
Quarter: 2023Q1

REPORT INFORMATION
  Report Type: Spontaneous
  Country: AU (occurrence: AU)
  Receive Date: 20230118
  Receipt Date: 20230118
  Transmission Date: 20230418
  Serious: Yes (Life-Threatening, Hospitalization, Other)
  Sender: FDA-Public Use
  Company Number: AU-MACLEODS PHARMACEUTICALS US LTD-MAC2023039223

PATIENT

DRUGS (1)
  1. LIDOCAINE [Suspect]
     Active Substance: LIDOCAINE
     Indication: Product used for unknown indication
     Dosage: 15 MILLILITER
     Route: 065

REACTIONS (3)
  - Infantile apnoea [Recovered/Resolved]
  - Neonatal seizure [Recovered/Resolved]
  - Accidental exposure to product [Recovered/Resolved]
